FAERS Safety Report 4829066-1 (Version None)
Quarter: 2005Q4

REPORT INFORMATION
  Report Type: 
  Country: None (occurrence: None)
  Receive Date: 20051031
  Receipt Date: 20041216
  Transmission Date: 20060501
  Serious: Yes (Hospitalization)
  Sender: FDA-Public Use
  Company Number: 200419655US

PATIENT
  Age: 31 Year
  Sex: Female

DRUGS (3)
  1. ARAVA [Suspect]
     Indication: RHEUMATOID ARTHRITIS
     Dosage: 100 MG QD PO
     Route: 048
     Dates: start: 20041101
  2. ARAVA [Suspect]
     Indication: RHEUMATOID ARTHRITIS
     Dosage: 20 MG QD PO
     Route: 048
     Dates: start: 20041101, end: 20041116
  3. ENBREL [Concomitant]

REACTIONS (2)
  - DYSPNOEA [None]
  - LUNG DISORDER [None]
